FAERS Safety Report 6450804-9 (Version None)
Quarter: 2009Q4

REPORT INFORMATION
  Report Type: 
  Country: None (occurrence: None)
  Receive Date: 20091120
  Receipt Date: 20091120
  Transmission Date: 20100525
  Serious: Yes (Hospitalization)
  Sender: FDA-Public Use
  Company Number: None

PATIENT
  Age: 63 Year
  Sex: Male
  Weight: 117.93 kg

DRUGS (2)
  1. CEPHALEXIN [Suspect]
     Indication: CELLULITIS
     Dosage: 500 MG BID PO
     Route: 048
     Dates: start: 20080821, end: 20080825
  2. CEPHALEXIN [Suspect]
     Indication: DIABETES MELLITUS
     Dosage: 500 MG BID PO
     Route: 048
     Dates: start: 20080821, end: 20080825

REACTIONS (6)
  - ERYTHEMA [None]
  - EXCORIATION [None]
  - OEDEMA [None]
  - PARAPSORIASIS [None]
  - RASH PUSTULAR [None]
  - SKIN EXFOLIATION [None]
